FAERS Safety Report 6902901-9 (Version None)
Quarter: 2010Q3

REPORT INFORMATION
  Report Type: 
  Country: None (occurrence: None)
  Receive Date: 20100803
  Receipt Date: 20080825
  Transmission Date: 20110219
  Serious: No
  Sender: FDA-Public Use
  Company Number: US-PFIZER INC-2008071497

PATIENT
  Sex: Female

DRUGS (8)
  1. LYRICA [Suspect]
     Indication: NEURALGIA
     Dates: start: 20080813
  2. KLONOPIN [Concomitant]
  3. VALIUM [Concomitant]
  4. SEROQUEL [Concomitant]
  5. RELAFEN [Concomitant]
  6. LORTAB [Concomitant]
  7. CELEXA [Concomitant]
  8. MUSCLE RELAXANTS [Concomitant]

REACTIONS (2)
  - CIRCUMSTANCE OR INFORMATION CAPABLE OF LEADING TO MEDICATION ERROR [None]
  - WEIGHT DECREASED [None]
